FAERS Safety Report 6702641-5 (Version None)
Quarter: 2010Q2

REPORT INFORMATION
  Report Type: 
  Country: None (occurrence: None)
  Receive Date: 20100429
  Receipt Date: 20100422
  Transmission Date: 20101027
  Serious: Yes (Hospitalization, Other)
  Sender: FDA-Public Use
  Company Number: CA-ABBOTT-10P-028-0638036-00

PATIENT
  Sex: Male
  Weight: 48.578 kg

DRUGS (3)
  1. HUMIRA [Suspect]
     Indication: CROHN'S DISEASE
     Dates: start: 20100226, end: 20100326
  2. SALOFALK [Concomitant]
     Indication: CROHN'S DISEASE
     Dosage: 2- 500 MG TABLETS THREE TIMES DAILY
     Route: 048
     Dates: start: 20070101
  3. PERCOCET [Concomitant]
     Indication: PAIN
     Dates: start: 20100101

REACTIONS (8)
  - ABDOMINAL ABSCESS [None]
  - BONE DISORDER [None]
  - BONE EROSION [None]
  - DECREASED APPETITE [None]
  - ENTEROCUTANEOUS FISTULA [None]
  - OSTEITIS [None]
  - PELVIC ABSCESS [None]
  - WEIGHT DECREASED [None]
